FAERS Safety Report 7984141-8 (Version None)
Quarter: 2011Q4

REPORT INFORMATION
  Report Type: 
  Country: None (occurrence: None)
  Receive Date: 20111216
  Receipt Date: 20111213
  Transmission Date: 20120403
  Serious: No
  Sender: FDA-Public Use
  Company Number: US-PFIZER INC-2011271085

PATIENT
  Sex: Male
  Weight: 77.098 kg

DRUGS (13)
  1. SERTRALINE HYDROCHLORIDE [Suspect]
     Indication: ANXIETY
     Dosage: 25 MG DAILY
     Route: 048
     Dates: start: 20111018, end: 20111103
  2. SERTRALINE HYDROCHLORIDE [Suspect]
     Indication: DEPRESSION
  3. XOPENEX [Concomitant]
     Indication: CHRONIC OBSTRUCTIVE PULMONARY DISEASE
     Dosage: UNK
  4. LISINOPRIL [Concomitant]
     Indication: BLOOD PRESSURE ABNORMAL
     Dosage: 10 MG, UNK
  5. XANAX [Concomitant]
     Indication: ANXIETY
     Dosage: 0.25 MG, 4X/DAY
     Route: 048
  6. PREDNISONE [Concomitant]
     Indication: CHRONIC OBSTRUCTIVE PULMONARY DISEASE
     Dosage: 10 MG, DAILY
  7. FLOVENT [Concomitant]
     Indication: CHRONIC OBSTRUCTIVE PULMONARY DISEASE
     Dosage: 220 MCG
  8. COMBIVENT [Concomitant]
     Indication: CHRONIC OBSTRUCTIVE PULMONARY DISEASE
     Dosage: UNK
  9. ACETYLSALICYLIC ACID [Concomitant]
     Indication: CARDIAC DISORDER
     Dosage: 81 MG DAILY
     Route: 048
  10. DEXILANT [Concomitant]
     Indication: DYSPEPSIA
     Dosage: 60 MG, UNK
  11. ZOCOR [Concomitant]
     Indication: BLOOD CHOLESTEROL ABNORMAL
     Dosage: 80 MG, UNK
  12. SINGULAIR [Concomitant]
     Indication: CHRONIC OBSTRUCTIVE PULMONARY DISEASE
     Dosage: 10 MG, UNK
  13. CLARINEX [Concomitant]
     Indication: HYPERSENSITIVITY
     Dosage: 5 MG, UNK

REACTIONS (2)
  - NAUSEA [None]
  - MOUTH ULCERATION [None]
